FAERS Safety Report 13138424 (Version 1)
Quarter: 2017Q1

REPORT INFORMATION
  Report Type: Spontaneous
  Country: PT (occurrence: PT)
  Receive Date: 20170123
  Receipt Date: 20170123
  Transmission Date: 20170428
  Serious: Yes (Disabling, Other)
  Sender: FDA-Public Use
  Company Number: PHHY2016PT180595

PATIENT
  Age: 62 Year
  Sex: Male

DRUGS (2)
  1. REVOLADE [Suspect]
     Active Substance: ELTROMBOPAG
     Indication: IMMUNE THROMBOCYTOPENIC PURPURA
     Dosage: 25 MG, UNK
     Route: 065
  2. PROZAC [Concomitant]
     Active Substance: FLUOXETINE HYDROCHLORIDE
     Indication: PRODUCT USED FOR UNKNOWN INDICATION
     Route: 065

REACTIONS (13)
  - Abasia [Recovering/Resolving]
  - Tracheal obstruction [Recovering/Resolving]
  - Paraesthesia [Unknown]
  - Pruritus [Unknown]
  - Adjustment disorder with depressed mood [Recovering/Resolving]
  - Arthralgia [Unknown]
  - Back pain [Unknown]
  - Sleep disorder [Unknown]
  - Dyspnoea [Recovering/Resolving]
  - Pain [Recovering/Resolving]
  - Asthenia [Unknown]
  - Pain in extremity [Recovering/Resolving]
  - Dizziness [Unknown]
